FAERS Safety Report 20035542 (Version 2)
Quarter: 2021Q4

REPORT INFORMATION
  Report Type: Spontaneous
  Country: US (occurrence: US)
  Receive Date: 20211104
  Receipt Date: 20211117
  Transmission Date: 20220303
  Serious: Yes (Other)
  Sender: FDA-Public Use
  Company Number: US-TEVA-2021-US-1972548

PATIENT
  Age: 76 Year
  Sex: Male

DRUGS (2)
  1. CISPLATIN [Suspect]
     Active Substance: CISPLATIN
     Indication: Metastases to peritoneum
     Route: 033
  2. MITOMYCIN [Suspect]
     Active Substance: MITOMYCIN
     Indication: Metastases to peritoneum
     Route: 033

REACTIONS (2)
  - Diaphragm muscle weakness [Not Recovered/Not Resolved]
  - Liver function test decreased [Not Recovered/Not Resolved]
